FAERS Safety Report 10193739 (Version 1)
Quarter: 2014Q2

REPORT INFORMATION
  Report Type: Spontaneous
  Country: US (occurrence: US)
  Receive Date: 20140524
  Receipt Date: 20140524
  Transmission Date: 20141212
  Serious: No
  Sender: FDA-Public Use
  Company Number: US-SA-2014SA001524

PATIENT
  Age: 63 Year
  Sex: Male

DRUGS (2)
  1. LANTUS SOLOSTAR [Suspect]
     Dosage: DOSE:25 UNIT(S)
     Route: 051
     Dates: start: 201208
  2. SOLOSTAR [Concomitant]
     Dates: start: 201208

REACTIONS (3)
  - Malaise [Unknown]
  - Incorrect product storage [Unknown]
  - Injection site pain [Unknown]
